FAERS Safety Report 9980356 (Version 1)
Quarter: 2014Q1

REPORT INFORMATION
  Report Type: Report from Study
  Country: US (occurrence: US)
  Receive Date: 20140307
  Receipt Date: 20140307
  Transmission Date: 20141002
  Serious: Yes (Death)
  Sender: FDA-Public Use
  Company Number: US-ROCHE-1332935

PATIENT
  Age: 95 Year
  Sex: Male

DRUGS (10)
  1. LUCENTIS [Suspect]
     Indication: AGE-RELATED MACULAR DEGENERATION
     Dosage: 0.05 CC 10MG/ML  LEFT EYE
     Route: 031
  2. LUCENTIS [Suspect]
     Indication: CHOROIDAL NEOVASCULARISATION
  3. ATACAND [Concomitant]
     Route: 065
  4. CARBAMAZEPINE [Concomitant]
     Route: 065
  5. MECLIZINE HYDROCHLORIDE [Concomitant]
     Route: 065
  6. RANITIDINE [Concomitant]
     Route: 065
  7. PRAVASTATIN [Concomitant]
     Route: 065
  8. ASPIR-LOW [Concomitant]
     Route: 065
  9. CARVEDILOL [Concomitant]
     Route: 065
  10. FUROSEMIDE [Concomitant]
     Route: 065

REACTIONS (3)
  - Death [Fatal]
  - Malaise [Unknown]
  - Retinal haemorrhage [Unknown]
